FAERS Safety Report 6127083-5 (Version None)
Quarter: 2009Q1

REPORT INFORMATION
  Report Type: 
  Country: None (occurrence: None)
  Receive Date: 20090318
  Receipt Date: 20090306
  Transmission Date: 20090719
  Serious: Yes (Other)
  Sender: FDA-Public Use
  Company Number: 2009-00941

PATIENT
  Sex: Female

DRUGS (3)
  1. VELCADE [Suspect]
     Indication: DRUG USE FOR UNKNOWN INDICATION
     Dosage: INTRAVENOUS
     Route: 042
  2. MELPHALAN [Concomitant]
  3. PREDNISOLONE [Concomitant]

REACTIONS (3)
  - ANTINUCLEAR ANTIBODY INCREASED [None]
  - DNA ANTIBODY POSITIVE [None]
  - SOFT TISSUE NECROSIS [None]
